FAERS Safety Report 17390637 (Version 2)
Quarter: 2020Q1

REPORT INFORMATION
  Report Type: Spontaneous
  Country: US (occurrence: US)
  Receive Date: 20200207
  Receipt Date: 20200305
  Transmission Date: 20200409
  Serious: No
  Sender: FDA-Public Use
  Company Number: US-ELI_LILLY_AND_COMPANY-US202002001553

PATIENT
  Sex: Female

DRUGS (1)
  1. HUMALOG [Suspect]
     Active Substance: INSULIN LISPRO
     Indication: TYPE 2 DIABETES MELLITUS
     Dosage: 63 INTERNATIONAL UNIT, DAILY
     Route: 058
     Dates: start: 1997

REACTIONS (3)
  - Disorientation [Unknown]
  - Feeling abnormal [Unknown]
  - Visual impairment [Unknown]
